FAERS Safety Report 8329145-0 (Version None)
Quarter: 2012Q2

REPORT INFORMATION
  Report Type: 
  Country: None (occurrence: None)
  Receive Date: 20120502
  Receipt Date: 20120420
  Transmission Date: 20120825
  Serious: Yes (Hospitalization, Other)
  Sender: FDA-Public Use
  Company Number: DE-ELI_LILLY_AND_COMPANY-DE201112002376

PATIENT
  Age: 41 Year
  Sex: Male

DRUGS (4)
  1. PANTOPRAZOLE [Concomitant]
     Dosage: UNK
     Dates: start: 20111201
  2. PLACEBO [Suspect]
     Indication: PANCREATIC CARCINOMA METASTATIC
     Dosage: 2 MG, QD
     Route: 048
     Dates: start: 20101202
  3. GEMCITABINE HYDROCHLORIDE [Suspect]
     Indication: PANCREATIC CARCINOMA METASTATIC
     Dosage: 1000 MG/M2, CYCLIC
     Route: 042
     Dates: start: 20101202
  4. PLACEBO [Suspect]
     Dosage: 1 MG, QD
     Route: 048

REACTIONS (3)
  - GLOMERULOSCLEROSIS [None]
  - THROMBOTIC MICROANGIOPATHY [None]
  - BLOOD CREATININE INCREASED [None]
